FAERS Safety Report 17132349 (Version 2)
Quarter: 2019Q4

REPORT INFORMATION
  Report Type: Report from Study
  Country: None (occurrence: US)
  Receive Date: 20191210
  Receipt Date: 20191210
  Transmission Date: 20200122
  Serious: Yes (Death)
  Sender: FDA-Public Use
  Company Number: US-ABBVIE-19K-163-3187458-00

PATIENT
  Age: 58 Year
  Sex: Male

DRUGS (3)
  1. VENCLEXTA [Suspect]
     Active Substance: VENETOCLAX
     Indication: BRAIN NEOPLASM MALIGNANT
     Dosage: 30MG DAILY X 1 WEEK?100MG DAILY X 1 WEEK?20MG DAILY X 1 WEEK
     Route: 048
  2. VENCLEXTA [Suspect]
     Active Substance: VENETOCLAX
     Indication: PLASMA CELL MYELOMA
  3. VENCLEXTA [Suspect]
     Active Substance: VENETOCLAX
     Indication: MENINGIOMA MALIGNANT

REACTIONS (2)
  - Death [Fatal]
  - Off label use [Unknown]

NARRATIVE: CASE EVENT DATE: 20191122
